FAERS Safety Report 20709447 (Version 1)
Quarter: 2022Q2

REPORT INFORMATION
  Report Type: Spontaneous
  Country: US (occurrence: US)
  Receive Date: 20220414
  Receipt Date: 20220414
  Transmission Date: 20220720
  Serious: Yes (Other)
  Sender: FDA-Public Use
  Company Number: US-LUPIN PHARMACEUTICALS INC.-2022-05590

PATIENT
  Age: 81 Year
  Sex: Female

DRUGS (5)
  1. VANCOMYCIN [Suspect]
     Active Substance: VANCOMYCIN
     Indication: Staphylococcal infection
     Dosage: UNK (FORTIFIED EVERY 2 HOURS FOR 1 MONTH FOLLOWED BY 4 TIMES DAILY FOR 2 WEEKS)
     Route: 061
  2. GENTAMICIN [Concomitant]
     Active Substance: GENTAMICIN
     Indication: Staphylococcal infection
     Dosage: UNK
     Route: 061
  3. LATANOPROST [Concomitant]
     Active Substance: LATANOPROST
     Indication: Neurotrophic keratopathy
     Dosage: UNK
     Route: 061
  4. FML [Concomitant]
     Active Substance: FLUOROMETHOLONE
     Indication: Neurotrophic keratopathy
     Dosage: UNK
     Route: 061
  5. COMBIGAN [Concomitant]
     Active Substance: BRIMONIDINE TARTRATE\TIMOLOL MALEATE
     Indication: Neurotrophic keratopathy
     Dosage: UNK
     Route: 061

REACTIONS (2)
  - Drug ineffective for unapproved indication [Unknown]
  - Off label use [Unknown]
